FAERS Safety Report 10902431 (Version 4)
Quarter: 2015Q2

REPORT INFORMATION
  Report Type: Spontaneous
  Country: US (occurrence: US)
  Receive Date: 20150310
  Receipt Date: 20150421
  Transmission Date: 20150821
  Serious: Yes (Death, Hospitalization)
  Sender: FDA-Public Use
  Company Number: US-INCYTE CORPORATION-2015IN000889

PATIENT
  Age: 77 Year
  Sex: Male

DRUGS (10)
  1. TYLENOL [Concomitant]
     Active Substance: ACETAMINOPHEN
  2. POTASSIUM CHLORIDE. [Concomitant]
     Active Substance: POTASSIUM CHLORIDE
  3. HYDROXYUREA. [Concomitant]
     Active Substance: HYDROXYUREA
  4. JAKAFI [Suspect]
     Active Substance: RUXOLITINIB
     Indication: MYELOFIBROSIS
     Dosage: 15 MG, BID
     Route: 048
     Dates: start: 20130515
  5. ISOSORBIDE [Concomitant]
     Active Substance: ISOSORBIDE
  6. COUMADIN [Concomitant]
     Active Substance: WARFARIN SODIUM
  7. DIGOXIN. [Concomitant]
     Active Substance: DIGOXIN
  8. LASIX [Concomitant]
     Active Substance: FUROSEMIDE
  9. FISH OIL [Concomitant]
     Active Substance: FISH OIL
  10. ALTACE [Concomitant]
     Active Substance: RAMIPRIL

REACTIONS (2)
  - Lung neoplasm malignant [Unknown]
  - Pulmonary haemorrhage [Fatal]

NARRATIVE: CASE EVENT DATE: 20150223
